FAERS Safety Report 18081156 (Version 1)
Quarter: 2020Q3

REPORT INFORMATION
  Report Type: Spontaneous
  Country: US (occurrence: US)
  Receive Date: 20200728
  Receipt Date: 20200728
  Transmission Date: 20201103
  Serious: Yes (Hospitalization)
  Sender: FDA-Public Use
  Company Number: US-ROCHE-2645127

PATIENT
  Age: 84 Year
  Sex: Female

DRUGS (1)
  1. XELODA [Suspect]
     Active Substance: CAPECITABINE
     Indication: PRODUCT USED FOR UNKNOWN INDICATION
     Route: 048
     Dates: start: 20200609, end: 20200623

REACTIONS (4)
  - Rash [Unknown]
  - Retching [Unknown]
  - Skin discolouration [Unknown]
  - Product use complaint [Unknown]

NARRATIVE: CASE EVENT DATE: 20200623
